FAERS Safety Report 17785844 (Version 1)
Quarter: 2020Q2

REPORT INFORMATION
  Report Type: Spontaneous
  Country: BR (occurrence: BR)
  Receive Date: 20200514
  Receipt Date: 20200514
  Transmission Date: 20200714
  Serious: Yes (Other)
  Sender: FDA-Public Use
  Company Number: BR-SA-2020SA117002

PATIENT
  Sex: Male
  Weight: 55 kg

DRUGS (2)
  1. STILNOX CR [Suspect]
     Active Substance: ZOLPIDEM TARTRATE
     Indication: INSOMNIA
     Dosage: 1 DF, HS
     Route: 048
  2. STILNOX [Suspect]
     Active Substance: ZOLPIDEM TARTRATE
     Indication: INSOMNIA
     Dosage: 1 DF, HS
     Route: 048

REACTIONS (16)
  - Chest pain [Not Recovered/Not Resolved]
  - Irritability [Recovered/Resolved]
  - Fatigue [Unknown]
  - Dry mouth [Recovered/Resolved]
  - Anxiety [Unknown]
  - Agitation [Not Recovered/Not Resolved]
  - Product use issue [Unknown]
  - Bruxism [Not Recovered/Not Resolved]
  - Insomnia [Not Recovered/Not Resolved]
  - Intentional product use issue [Unknown]
  - Negative thoughts [Recovered/Resolved]
  - Psychiatric symptom [Recovered/Resolved]
  - Tremor [Not Recovered/Not Resolved]
  - Loss of consciousness [Recovered/Resolved]
  - Asthenia [Recovered/Resolved]
  - Chest discomfort [Unknown]

NARRATIVE: CASE EVENT DATE: 20200311
